FAERS Safety Report 17485458 (Version 1)
Quarter: 2020Q1

REPORT INFORMATION
  Report Type: Spontaneous
  Country: US (occurrence: US)
  Receive Date: 20200302
  Receipt Date: 20200302
  Transmission Date: 20200409
  Serious: No
  Sender: FDA-Public Use
  Company Number: US-ELI_LILLY_AND_COMPANY-US202002012797

PATIENT
  Sex: Female

DRUGS (1)
  1. HUMALOG [Suspect]
     Active Substance: INSULIN LISPRO
     Indication: BLOOD GLUCOSE INCREASED
     Dosage: 35 UL, TID
     Route: 058
     Dates: start: 2016

REACTIONS (3)
  - Pollakiuria [Not Recovered/Not Resolved]
  - Thirst [Not Recovered/Not Resolved]
  - Blood glucose increased [Not Recovered/Not Resolved]
